FAERS Safety Report 9782372 (Version 1)
Quarter: 2013Q4

REPORT INFORMATION
  Report Type: Report from Study
  Country: MX (occurrence: MX)
  Receive Date: 20131226
  Receipt Date: 20131226
  Transmission Date: 20140711
  Serious: Yes (Other)
  Sender: FDA-Public Use
  Company Number: PHHY2013MX150471

PATIENT
  Age: 86 Year
  Sex: Female

DRUGS (2)
  1. EXELON PATCH [Suspect]
     Indication: DEPRESSION
     Dosage: 4.6 MG/5CM2, DAILY
     Route: 062
     Dates: start: 201310
  2. EXELON PATCH [Suspect]
     Indication: OFF LABEL USE

REACTIONS (8)
  - Memory impairment [Not Recovered/Not Resolved]
  - Diabetes mellitus [Not Recovered/Not Resolved]
  - Logorrhoea [Not Recovered/Not Resolved]
  - Gastritis [Not Recovered/Not Resolved]
  - Blood cholesterol increased [Not Recovered/Not Resolved]
  - Inflammation [Not Recovered/Not Resolved]
  - Localised infection [Not Recovered/Not Resolved]
  - Hypertension [Not Recovered/Not Resolved]
